FAERS Safety Report 5769990-9 (Version None)
Quarter: 2008Q2

REPORT INFORMATION
  Report Type: 
  Country: None (occurrence: None)
  Receive Date: 20080613
  Receipt Date: 20080416
  Transmission Date: 20081010
  Serious: No
  Sender: FDA-Public Use
  Company Number: US-ABBOTT-08P-163-0447754-00

PATIENT
  Sex: Female
  Weight: 63.56 kg

DRUGS (18)
  1. HUMIRA [Suspect]
     Indication: ROSACEA
     Route: 058
     Dates: start: 20060401, end: 20060801
  2. HUMIRA [Suspect]
     Indication: DERMATITIS
  3. LOTREL [Concomitant]
     Indication: HYPERTENSION
     Dosage: DAILY
     Route: 048
  4. LIBRAX [Concomitant]
     Indication: IRRITABLE BOWEL SYNDROME
     Dosage: DAILY
     Route: 048
  5. ESOMEPRAZOLE MAGNESIUM [Concomitant]
     Indication: GASTROOESOPHAGEAL REFLUX DISEASE
     Route: 048
  6. EVOVAX [Concomitant]
     Indication: SICCA SYNDROME
     Route: 048
  7. CIRRUS [Concomitant]
     Indication: SEASONAL ALLERGY
     Dosage: ONE DAILY
     Route: 048
  8. DOXYCYCLINE [Concomitant]
     Indication: PROPHYLAXIS
     Route: 048
  9. INEGY [Concomitant]
     Indication: BLOOD TRIGLYCERIDES INCREASED
     Dosage: DAILY
     Route: 048
  10. DETROL LA [Concomitant]
     Indication: BLADDER SPASM
     Dosage: DAILY
     Route: 048
  11. TRIAMCINOLONE ACETONIDE [Concomitant]
     Indication: SICCA SYNDROME
     Dosage: MONTHLY
     Route: 050
  12. IBUROFEN [Concomitant]
     Indication: PAIN
     Route: 048
  13. MIMYX [Concomitant]
     Indication: ROSACEA
     Dosage: DAILY
     Route: 061
  14. AZASITE [Concomitant]
     Indication: ROSACEA
     Route: 048
  15. DULOXETINE HYDROCHLORIDE [Concomitant]
     Indication: DEPRESSION
     Dosage: DAILY
     Route: 048
  16. LORAZEPAM [Concomitant]
     Indication: ANXIETY
     Route: 048
  17. CYCLOSPORINE [Concomitant]
     Indication: DRY EYE
     Route: 050
  18. PREDNISONE TAB [Concomitant]
     Indication: DRUG USE FOR UNKNOWN INDICATION
     Route: 048

REACTIONS (6)
  - BLOOD TRIGLYCERIDES INCREASED [None]
  - FATIGUE [None]
  - HEPATIC ENZYME INCREASED [None]
  - HYPERSOMNIA [None]
  - INFLUENZA LIKE ILLNESS [None]
  - INJECTION SITE PAIN [None]
